FAERS Safety Report 16830816 (Version 2)
Quarter: 2019Q4

REPORT INFORMATION
  Report Type: Report from Study
  Country: None (occurrence: US)
  Receive Date: 20190920
  Receipt Date: 20191108
  Transmission Date: 20200122
  Serious: Yes (Hospitalization, Other)
  Sender: FDA-Public Use
  Company Number: US-ABBVIE-19K-163-2928737-00

PATIENT
  Age: 48 Year
  Sex: Female
  Weight: 80.36 kg

DRUGS (2)
  1. HUMIRA [Suspect]
     Active Substance: ADALIMUMAB
     Indication: PSORIASIS
     Route: 058
     Dates: start: 20190627, end: 20190822
  2. HUMIRA [Suspect]
     Active Substance: ADALIMUMAB
     Indication: IRRITABLE BOWEL SYNDROME

REACTIONS (11)
  - Blister [Recovering/Resolving]
  - Large intestine polyp [Recovered/Resolved]
  - Peripheral swelling [Recovering/Resolving]
  - Inflammatory bowel disease [Unknown]
  - Neck mass [Recovering/Resolving]
  - Rectal haemorrhage [Recovering/Resolving]
  - Hepatomegaly [Unknown]
  - Erythema [Recovering/Resolving]
  - Gastrointestinal injury [Unknown]
  - Musculoskeletal disorder [Recovering/Resolving]
  - Eye infection [Recovering/Resolving]

NARRATIVE: CASE EVENT DATE: 201908
